FAERS Safety Report 9850294 (Version 2)
Quarter: 2014Q1

REPORT INFORMATION
  Report Type: Spontaneous
  Country: CN (occurrence: CN)
  Receive Date: 20140128
  Receipt Date: 20140203
  Transmission Date: 20141002
  Serious: Yes (Other)
  Sender: FDA-Public Use
  Company Number: CN-GLAXOSMITHKLINE-B0963655A

PATIENT
  Age: 5 Year
  Sex: Male
  Weight: 27 kg

DRUGS (1)
  1. SERETIDE [Suspect]
     Indication: ASTHMA
     Dosage: 1PUFF TWICE PER DAY
     Route: 055
     Dates: start: 20130529

REACTIONS (4)
  - Growth retardation [Unknown]
  - Overdose [Unknown]
  - Drug ineffective [Recovered/Resolved]
  - Product quality issue [Unknown]
